FAERS Safety Report 14354311 (Version 2)
Quarter: 2018Q1

REPORT INFORMATION
  Report Type: Report from Study
  Country: FR (occurrence: FR)
  Receive Date: 20180105
  Receipt Date: 20180326
  Transmission Date: 20180509
  Serious: Yes (Death, Hospitalization, Other)
  Sender: FDA-Public Use
  Company Number: FR-MERCK KGAA-2038471

PATIENT
  Age: 85 Year
  Sex: Female
  Weight: 60 kg

DRUGS (9)
  1. BRENTUXIMAB VEDOTIN [Suspect]
     Active Substance: BRENTUXIMAB VEDOTIN
     Dates: start: 20151217, end: 20160330
  2. NOVOTHYROX [Suspect]
     Active Substance: LEVOTHYROXINE SODIUM
     Indication: HYPOTHYROIDISM
  3. BRENTUXIMAB VEDOTIN [Suspect]
     Active Substance: BRENTUXIMAB VEDOTIN
     Dates: start: 20160330
  4. OXALIPLATIN. [Concomitant]
     Active Substance: OXALIPLATIN
     Dates: start: 20160830, end: 20170216
  5. TAZOCILLINE (PIP/TAZO) [Suspect]
     Active Substance: PIPERACILLIN SODIUM\TAZOBACTAM SODIUM
  6. ONDANSETRON [Suspect]
     Active Substance: ONDANSETRON
  7. KARDEGIC [Suspect]
     Active Substance: ASPIRIN DL-LYSINE
  8. RITUXIMAB. [Concomitant]
     Active Substance: RITUXIMAB
     Dates: start: 20160830, end: 20170216
  9. GEMCITABINE [Concomitant]
     Active Substance: GEMCITABINE\GEMCITABINE HYDROCHLORIDE
     Dates: start: 20160830, end: 20170216

REACTIONS (17)
  - Cardiac murmur [Fatal]
  - Toxicity to various agents [Fatal]
  - Hodgkin^s disease [Fatal]
  - Nausea [Fatal]
  - Neutropenia [Fatal]
  - Respiratory distress [Fatal]
  - Rash [Fatal]
  - Lung disorder [Fatal]
  - Asthenia [Fatal]
  - Weight decreased [Fatal]
  - Neuropathy peripheral [Fatal]
  - Hyperhidrosis [Fatal]
  - Vomiting [Fatal]
  - Tachycardia [Fatal]
  - Hyperthermia [Fatal]
  - Cardio-respiratory arrest [Fatal]
  - Abdominal pain [Fatal]

NARRATIVE: CASE EVENT DATE: 2016
